FAERS Safety Report 10476045 (Version 1)
Quarter: 2014Q3

REPORT INFORMATION
  Report Type: Report from Study
  Country: BR (occurrence: BR)
  Receive Date: 20140925
  Receipt Date: 20140925
  Transmission Date: 20150326
  Serious: Yes (Life-Threatening, Other)
  Sender: FDA-Public Use
  Company Number: PHHY2014BR125291

PATIENT
  Sex: Female

DRUGS (1)
  1. EXELON [Suspect]
     Active Substance: RIVASTIGMINE TARTRATE
     Dosage: UNK UKN, UNK

REACTIONS (7)
  - Diabetes mellitus [Unknown]
  - Post procedural complication [Unknown]
  - Malaise [Unknown]
  - Renal disorder [Recovered/Resolved]
  - Cardiac disorder [Unknown]
  - Memory impairment [Unknown]
  - Coma [Unknown]
